FAERS Safety Report 14299765 (Version 1)
Quarter: 2017Q4

REPORT INFORMATION
  Report Type: Spontaneous
  Country: BE (occurrence: BE)
  Receive Date: 20171219
  Receipt Date: 20171219
  Transmission Date: 20180321
  Serious: Yes (Life-Threatening, Hospitalization, Other)
  Sender: FDA-Public Use
  Company Number: BE-CIPLA LTD.-2017BE23834

PATIENT

DRUGS (4)
  1. TREVICTA [Suspect]
     Active Substance: PALIPERIDONE PALMITATE
     Dosage: 350 MG, UNK
     Route: 030
  2. TREVICTA [Suspect]
     Active Substance: PALIPERIDONE PALMITATE
     Indication: PRODUCT USED FOR UNKNOWN INDICATION
     Dosage: 263 MG, UNK
     Route: 030
  3. XEPLION [Suspect]
     Active Substance: PALIPERIDONE PALMITATE
     Indication: PARANOIA
     Dosage: 25 MG, UNK
     Route: 030
  4. RISPERIDONE. [Suspect]
     Active Substance: RISPERIDONE
     Indication: PARANOIA
     Dosage: UNK
     Route: 048

REACTIONS (4)
  - Drug ineffective [Unknown]
  - Paranoia [Unknown]
  - Depression [Unknown]
  - Confusional state [Unknown]

NARRATIVE: CASE EVENT DATE: 2017
